FAERS Safety Report 6441213-7 (Version None)
Quarter: 2009Q4

REPORT INFORMATION
  Report Type: 
  Country: None (occurrence: None)
  Receive Date: 20091116
  Receipt Date: 20091102
  Transmission Date: 20100525
  Serious: Yes (Other)
  Sender: FDA-Public Use
  Company Number: DE-PFIZER INC-2009292393

PATIENT
  Age: 26 Year
  Sex: Female

DRUGS (1)
  1. PREDNISOLONE AND PREDNISOLONE STEAGLATE [Suspect]
     Indication: DRUG ERUPTION
     Dosage: 60 MG, 1X/DAY

REACTIONS (1)
  - PUSTULAR PSORIASIS [None]
